FAERS Safety Report 6310829-0 (Version None)
Quarter: 2009Q3

REPORT INFORMATION
  Report Type: 
  Country: None (occurrence: None)
  Receive Date: 20090812
  Receipt Date: 20090731
  Transmission Date: 20100115
  Serious: Yes (Other)
  Sender: FDA-Public Use
  Company Number: PAR_03119_2009

PATIENT
  Sex: Male

DRUGS (1)
  1. MEGACE ES [Suspect]
     Indication: DECREASED APPETITE
     Dosage: (DF)

REACTIONS (3)
  - BLINDNESS UNILATERAL [None]
  - CEREBROVASCULAR ACCIDENT [None]
  - VISUAL ACUITY REDUCED [None]
